FAERS Safety Report 9109318 (Version 1)
Quarter: 2013Q1

REPORT INFORMATION
  Report Type: Spontaneous
  Country: US (occurrence: US)
  Receive Date: 20130222
  Receipt Date: 20130222
  Transmission Date: 20140127
  Serious: No
  Sender: FDA-Public Use
  Company Number: US-PFIZER INC-2013065637

PATIENT
  Age: 95 Year
  Sex: Female
  Weight: 58.5 kg

DRUGS (4)
  1. LYRICA [Suspect]
     Indication: HEADACHE
     Dosage: 100 MG, 2X/DAY
  2. LYRICA [Interacting]
     Indication: NERVOUS SYSTEM DISORDER
  3. IRON [Concomitant]
     Indication: ANAEMIA
     Dosage: UNK
  4. VITAMIN D [Concomitant]
     Indication: BONE DISORDER
     Dosage: 10000 MG, UNK

REACTIONS (6)
  - Drug interaction [Unknown]
  - Fatigue [Unknown]
  - Nervousness [Unknown]
  - Pain [Recovered/Resolved]
  - Visual impairment [Unknown]
  - Drug ineffective [Recovered/Resolved]
